FAERS Safety Report 9803995 (Version 1)
Quarter: 2014Q1

REPORT INFORMATION
  Report Type: Spontaneous
  Country: US (occurrence: None)
  Receive Date: 20140103
  Receipt Date: 20140103
  Transmission Date: 20141002
  Serious: Yes (Other)
  Sender: FDA-Public Use
  Company Number: 2013-US-004966

PATIENT
  Sex: Female

DRUGS (3)
  1. XYREM [Suspect]
     Indication: CATAPLEXY
     Route: 048
     Dates: start: 201007, end: 201007
  2. XYREM [Suspect]
     Indication: NARCOLEPSY
     Route: 048
     Dates: start: 201007, end: 201007
  3. BACLOFEN (BACLOFEN) [Concomitant]

REACTIONS (3)
  - Sleep apnoea syndrome [None]
  - Dysphagia [None]
  - Scar [None]
